FAERS Safety Report 5148796-8 (Version None)
Quarter: 2006Q4

REPORT INFORMATION
  Report Type: 
  Country: None (occurrence: None)
  Receive Date: 20061113
  Receipt Date: 20061029
  Transmission Date: 20070319
  Serious: Yes (Other)
  Sender: FDA-Public Use
  Company Number: PHRM2006DZ02955

PATIENT
  Age: 70 Year
  Sex: Female

DRUGS (1)
  1. TAREG [Suspect]
     Route: 048

REACTIONS (3)
  - ANAPHYLACTIC SHOCK [None]
  - BLOOD PRESSURE IMMEASURABLE [None]
  - URTICARIA GENERALISED [None]
